FAERS Safety Report 17240271 (Version 1)
Quarter: 2020Q1

REPORT INFORMATION
  Report Type: Spontaneous
  Country: US (occurrence: US)
  Receive Date: 20200107
  Receipt Date: 20200107
  Transmission Date: 20200409
  Serious: No
  Sender: FDA-Public Use
  Company Number: US-TEVA-2020-US-1163728

PATIENT
  Sex: Female

DRUGS (1)
  1. MICROGESTIN [Suspect]
     Active Substance: ETHINYL ESTRADIOL\NORETHINDRONE ACETATE
     Dosage: FORM STRENGTH AND UNIT DOSE: UNKNOWN
     Route: 065
     Dates: start: 2006

REACTIONS (2)
  - Menorrhagia [Unknown]
  - Menstruation irregular [Unknown]
